FAERS Safety Report 17201338 (Version 1)
Quarter: 2019Q4

REPORT INFORMATION
  Report Type: Spontaneous
  Country: US (occurrence: US)
  Receive Date: 20191226
  Receipt Date: 20191226
  Transmission Date: 20200122
  Serious: Yes (Other)
  Sender: FDA-Public Use
  Company Number: US-INTERNATIONAL MEDICATION SYSTEMS, LIMITED-2077834

PATIENT
  Age: 64 Year
  Sex: Female
  Weight: 88.5 kg

DRUGS (1)
  1. LIDOCAINE HYDROCHLORIDE. [Suspect]
     Active Substance: LIDOCAINE HYDROCHLORIDE
     Indication: ENDOTRACHEAL INTUBATION

REACTIONS (3)
  - Foreign body in respiratory tract [Unknown]
  - Post procedural complication [Unknown]
  - Device breakage [None]

NARRATIVE: CASE EVENT DATE: 20191119
